FAERS Safety Report 5879947-5 (Version None)
Quarter: 2008Q3

REPORT INFORMATION
  Report Type: 
  Country: None (occurrence: None)
  Receive Date: 20080912
  Receipt Date: 20080908
  Transmission Date: 20090109
  Serious: Yes (Other)
  Sender: FDA-Public Use
  Company Number: US-ASTRAZENECA-2008UW18334

PATIENT
  Age: 75 Year
  Sex: Female
  Weight: 59 kg

DRUGS (2)
  1. PRILOSEC OTC [Suspect]
     Route: 048
     Dates: start: 20080829, end: 20080903
  2. VALIUM [Concomitant]
     Indication: ARTHRITIS
     Dosage: PRN
     Route: 048

REACTIONS (4)
  - DRY MOUTH [None]
  - ERUCTATION [None]
  - NON-CARDIAC CHEST PAIN [None]
  - RASH MACULAR [None]
